FAERS Safety Report 5270933-5 (Version None)
Quarter: 2007Q1

REPORT INFORMATION
  Report Type: 
  Country: None (occurrence: None)
  Receive Date: 20061214
  Receipt Date: 20060714
  Transmission Date: 20070707
  Serious: Yes (Hospitalization, Other)
  Sender: FDA-Public Use
  Company Number: 2005166075

PATIENT
  Age: 72 Year
  Sex: Male
  Weight: 90.7194 kg

DRUGS (12)
  1. BEXTRA [Suspect]
     Dates: start: 20020601
  2. VIOXX [Suspect]
     Dates: start: 20020601
  3. AMBIEN [Concomitant]
  4. ULTRACET [Concomitant]
  5. VALSARTAN [Concomitant]
  6. EFFEXOR [Concomitant]
  7. AZOPT [Concomitant]
  8. PRAVACHOL [Concomitant]
  9. XALATAN [Concomitant]
  10. TAMSULOSIN HCL [Concomitant]
  11. GLUCOSAMINE (GLUCOSAMINE) [Concomitant]
  12. LASIX [Concomitant]

REACTIONS (2)
  - DEEP VEIN THROMBOSIS [None]
  - PULMONARY THROMBOSIS [None]
